FAERS Safety Report 20747548 (Version 1)
Quarter: 2022Q2

REPORT INFORMATION
  Report Type: Spontaneous
  Country: US (occurrence: US)
  Receive Date: 20220425
  Receipt Date: 20220425
  Transmission Date: 20220721
  Serious: No
  Sender: FDA-Public Use
  Company Number: US-SA-SAC20220421000771

PATIENT
  Sex: Male

DRUGS (5)
  1. DUPIXENT [Suspect]
     Active Substance: DUPILUMAB
     Indication: Dermatitis atopic
     Dosage: 300 MG, QOW
     Route: 058
  2. ACETAMINOPHEN\HYDROCODONE [Concomitant]
     Active Substance: ACETAMINOPHEN\HYDROCODONE
  3. ALLOPURINOL [Concomitant]
     Active Substance: ALLOPURINOL
  4. CLONAZEPAM [Concomitant]
     Active Substance: CLONAZEPAM
  5. CEFDINIR [Concomitant]
     Active Substance: CEFDINIR

REACTIONS (1)
  - Injection site bruising [Not Recovered/Not Resolved]
